FAERS Safety Report 4695547-7 (Version None)
Quarter: 2005Q2

REPORT INFORMATION
  Report Type: 
  Country: None (occurrence: None)
  Receive Date: 20050523
  Receipt Date: 20050511
  Transmission Date: 20051028
  Serious: Yes (Disabling)
  Sender: FDA-Public Use
  Company Number: 2005AP02831

PATIENT
  Age: 22314 Day
  Sex: Male
  Weight: 66.6 kg

DRUGS (14)
  1. OMEPRAL [Suspect]
     Indication: PANCREATIC CARCINOMA
     Route: 048
     Dates: start: 20050426, end: 20050510
  2. LOXONIN [Suspect]
     Route: 048
     Dates: start: 20050426
  3. GASMOTIN [Suspect]
     Route: 048
     Dates: start: 20050426
  4. MAGNESIUM OXIDE [Suspect]
     Route: 048
     Dates: start: 20050426
  5. PURSENNID [Suspect]
     Route: 048
     Dates: start: 20050426
  6. NOVAMIN [Suspect]
     Route: 048
     Dates: start: 20050428, end: 20050510
  7. MS CONTIN [Suspect]
     Route: 048
     Dates: start: 20050502, end: 20050511
  8. GEMZAR [Suspect]
     Route: 065
     Dates: start: 20050506, end: 20050506
  9. NASEA [Suspect]
     Dates: start: 20050506, end: 20050506
  10. NASEA-OD [Suspect]
     Route: 048
     Dates: start: 20050507, end: 20050509
  11. DECADRON [Suspect]
     Dates: start: 20050506, end: 20050506
  12. ASPIRIN [Concomitant]
     Route: 048
     Dates: end: 20050517
  13. COVERSYL [Concomitant]
     Route: 048
     Dates: end: 20050517
  14. PANALDINE [Concomitant]
     Route: 048
     Dates: end: 20050517

REACTIONS (1)
  - MACULAR DEGENERATION [None]
